FAERS Safety Report 8471907-3 (Version None)
Quarter: 2012Q2

REPORT INFORMATION
  Report Type: 
  Country: None (occurrence: None)
  Receive Date: 20120627
  Receipt Date: 20120619
  Transmission Date: 20120825
  Serious: Yes (Hospitalization)
  Sender: FDA-Public Use
  Company Number: SE-JNJFOC-20120610090

PATIENT
  Sex: Female

DRUGS (3)
  1. ANGIOTENSIN-CONVERTING ENZYME INHIBITORS [Suspect]
     Indication: PRODUCT USED FOR UNKNOWN INDICATION
     Route: 065
  2. ANGIOTENSIN-CONVERTING ENZYME INHIBITORS [Suspect]
     Route: 065
  3. IBUPROFEN [Suspect]
     Indication: BACK DISORDER
     Route: 065
     Dates: end: 20120113

REACTIONS (1)
  - HYPERKALAEMIA [None]
